FAERS Safety Report 6761410-0 (Version None)
Quarter: 2010Q2

REPORT INFORMATION
  Report Type: 
  Country: None (occurrence: None)
  Receive Date: 20100607
  Receipt Date: 20100515
  Transmission Date: 20101027
  Serious: Yes (Other)
  Sender: FDA-Public Use
  Company Number: 2010AP000423

PATIENT
  Age: 60 Year
  Sex: Female

DRUGS (10)
  1. SIMVASTATIN [Suspect]
     Indication: CARDIAC DISORDER
     Dosage: 80 MG;QD
  2. CLARITHROMYCIN [Suspect]
     Indication: LOWER RESPIRATORY TRACT INFECTION
     Dosage: 250 MG; BID
  3. QUETIAPINE [Concomitant]
  4. LITHIUM CARBONATE [Concomitant]
  5. PERICIAZINE (PERICIAZINE) [Concomitant]
  6. ESCITALOPRAM [Concomitant]
  7. DIAZEPAM [Concomitant]
  8. ASPIRIN [Concomitant]
  9. PERINDOPRIL ERBUMINE [Concomitant]
  10. DIGOXIN [Concomitant]

REACTIONS (10)
  - ANTIPSYCHOTIC DRUG LEVEL BELOW THERAPEUTIC [None]
  - AUTONOMIC NERVOUS SYSTEM IMBALANCE [None]
  - BLOOD IRON DECREASED [None]
  - DISEASE RECURRENCE [None]
  - DRUG INTERACTION [None]
  - HYPERHIDROSIS [None]
  - HYPOTENSION [None]
  - LABILE BLOOD PRESSURE [None]
  - NEUROLEPTIC MALIGNANT SYNDROME [None]
  - TACHYCARDIA [None]
